FAERS Safety Report 16301324 (Version 2)
Quarter: 2019Q2

REPORT INFORMATION
  Report Type: Spontaneous
  Country: US (occurrence: US)
  Receive Date: 20190510
  Receipt Date: 20190531
  Transmission Date: 20190711
  Serious: No
  Sender: FDA-Public Use
  Company Number: US-SHIRE-US201915359

PATIENT
  Sex: Male
  Weight: 86.17 kg

DRUGS (1)
  1. XIIDRA [Suspect]
     Active Substance: LIFITEGRAST
     Indication: LACRIMATION INCREASED
     Dosage: UNK
     Route: 047

REACTIONS (2)
  - Instillation site pain [Recovered/Resolved]
  - Off label use [Unknown]
